FAERS Safety Report 9725622 (Version 2)
Quarter: 2014Q3

REPORT INFORMATION
  Report Type: Spontaneous
  Country: US (occurrence: None)
  Receive Date: 20131127
  Receipt Date: 20140729
  Transmission Date: 20150326
  Serious: Yes (Other)
  Sender: FDA-Public Use
  Company Number: AUR-APL-2013-09852

PATIENT
  Age: 68 Year
  Sex: Female

DRUGS (3)
  1. PAROXETINE [Suspect]
     Active Substance: PAROXETINE\PAROXETINE HYDROCHLORIDE
     Indication: ANXIETY
     Dosage: 10 MG  ONCE A DAY, ORAL
     Route: 048
     Dates: start: 20121221, end: 20130107
  2. LORAZEPAM (LORAZEPAM) [Concomitant]
     Active Substance: LORAZEPAM
  3. GEMCITABINE [Concomitant]
     Active Substance: GEMCITABINE\GEMCITABINE HYDROCHLORIDE

REACTIONS (5)
  - Hyponatraemia [None]
  - Hypophagia [None]
  - Tremor [None]
  - Somatisation disorder [None]
  - Bone marrow failure [None]
